FAERS Safety Report 6034478-7 (Version None)
Quarter: 2009Q1

REPORT INFORMATION
  Report Type: 
  Country: None (occurrence: None)
  Receive Date: 20090112
  Receipt Date: 20081229
  Transmission Date: 20090719
  Serious: Yes (Death)
  Sender: FDA-Public Use
  Company Number: US-GENENTECH-275124

PATIENT

DRUGS (2)
  1. BEVACIZUMAB [Suspect]
     Indication: RENAL CELL CARCINOMA
     Dosage: 10 MG/KG, Q2W
     Route: 042
  2. INTERFERON ALFA-2B [Suspect]
     Indication: RENAL CELL CARCINOMA
     Dosage: 3 MIU, 3/WEEK
     Route: 058

REACTIONS (1)
  - DEATH [None]
